FAERS Safety Report 7128874-4 (Version None)
Quarter: 2010Q4

REPORT INFORMATION
  Report Type: 
  Country: None (occurrence: None)
  Receive Date: 20101130
  Receipt Date: 20101117
  Transmission Date: 20110411
  Serious: Yes (Hospitalization)
  Sender: FDA-Public Use
  Company Number: A0803630A

PATIENT
  Age: 71 Year
  Sex: Female
  Weight: 102.3 kg

DRUGS (10)
  1. AVANDIA [Suspect]
     Indication: DIABETES MELLITUS
     Dosage: 4MG TWICE PER DAY
     Route: 048
     Dates: end: 20041011
  2. AVANDAMET [Suspect]
     Indication: DIABETES MELLITUS
     Route: 048
     Dates: start: 20041011, end: 20050823
  3. TOPROL-XL [Concomitant]
  4. CARDIZEM [Concomitant]
  5. LIPITOR [Concomitant]
  6. FOSAMAX [Concomitant]
  7. GLIPIZIDE [Concomitant]
  8. ALLOPURINOL [Concomitant]
  9. ZETIA [Concomitant]
  10. PRINIVIL [Concomitant]
     Dates: start: 20050203

REACTIONS (3)
  - CARDIAC FAILURE CONGESTIVE [None]
  - CARDIOMYOPATHY [None]
  - TRANSIENT ISCHAEMIC ATTACK [None]
